FAERS Safety Report 8115536-X (Version None)
Quarter: 2012Q1

REPORT INFORMATION
  Report Type: 
  Country: None (occurrence: None)
  Receive Date: 20120201
  Receipt Date: 20120118
  Transmission Date: 20120608
  Serious: Yes (Death, Hospitalization)
  Sender: FDA-Public Use
  Company Number: UTC-014207

PATIENT
  Age: 62 Year
  Sex: Female
  Weight: 84.5 kg

DRUGS (4)
  1. DIURETICS (DIURETICS) [Concomitant]
  2. ADCIRCA [Concomitant]
  3. TYVASO [Suspect]
     Indication: HYPERTENSION
     Dosage: 216 MCG (54 MCG, 4 IN 1 D), INHALATION
     Route: 055
     Dates: start: 20100202
  4. COUMADIN [Concomitant]

REACTIONS (2)
  - DIZZINESS [None]
  - HYPOTENSION [None]
